FAERS Safety Report 10693015 (Version 1)
Quarter: 2015Q1

REPORT INFORMATION
  Report Type: Spontaneous
  Country: US (occurrence: None)
  Receive Date: 20150105
  Receipt Date: 20150105
  Transmission Date: 20150720
  Serious: Yes (Disabling)
  Sender: FDA-Public Use
  Company Number: None

PATIENT
  Age: 34 Year
  Sex: Female
  Weight: 87.54 kg

DRUGS (1)
  1. HYDROXYPROGESTERONE [Suspect]
     Active Substance: HYDROXYPROGESTERONE
     Indication: PREMATURE LABOUR
     Dosage: 250MG, WEEKLY, INTO THE MUSCLE
     Dates: start: 20131017

REACTIONS (2)
  - Gestational diabetes [None]
  - Exposure during pregnancy [None]

NARRATIVE: CASE EVENT DATE: 20131220
